FAERS Safety Report 12486353 (Version 1)
Quarter: 2016Q2

REPORT INFORMATION
  Report Type: Spontaneous
  Country: AT (occurrence: AT)
  Receive Date: 20160621
  Receipt Date: 20160621
  Transmission Date: 20160815
  Serious: Yes (Other)
  Sender: FDA-Public Use
  Company Number: AT-ELI_LILLY_AND_COMPANY-AT201606004035

PATIENT
  Age: 26 Year
  Sex: Male

DRUGS (3)
  1. ZYPREXA [Suspect]
     Active Substance: OLANZAPINE
     Indication: PRODUCT USED FOR UNKNOWN INDICATION
     Dosage: 10 MG, UNKNOWN
     Route: 065
     Dates: start: 20160322
  2. CIPROFLOXACIN. [Concomitant]
     Active Substance: CIPROFLOXACIN
     Indication: URINARY TRACT INFECTION
     Dosage: UNK UNK, UNKNOWN
     Route: 065
     Dates: start: 20160323, end: 20160330
  3. ADJUVIN [Suspect]
     Active Substance: SERTRALINE HYDROCHLORIDE
     Indication: DEPRESSION
     Dosage: 50 MG, UNKNOWN
     Route: 065
     Dates: start: 20160401

REACTIONS (5)
  - Abdominal pain lower [Recovered/Resolved]
  - Depression [Unknown]
  - Urinary retention [Unknown]
  - Dysuria [Recovered/Resolved]
  - Urinary retention [None]

NARRATIVE: CASE EVENT DATE: 20160408
